FAERS Safety Report 5021680-6 (Version None)
Quarter: 2006Q2

REPORT INFORMATION
  Report Type: 
  Country: None (occurrence: None)
  Receive Date: 20060605
  Receipt Date: 20060518
  Transmission Date: 20061013
  Serious: Yes (Other)
  Sender: FDA-Public Use
  Company Number: US200605004101

PATIENT
  Sex: Female

DRUGS (1)
  1. CYMBALTA [Suspect]
     Dates: start: 20060101, end: 20060101

REACTIONS (1)
  - HEPATITIS ACUTE [None]
